FAERS Safety Report 8275703-1 (Version None)
Quarter: 2012Q1

REPORT INFORMATION
  Report Type: 
  Country: None (occurrence: None)
  Receive Date: 20120309
  Receipt Date: 20111215
  Transmission Date: 20120608
  Serious: No
  Sender: FDA-Public Use
  Company Number: TH-2012-00018

PATIENT

DRUGS (2)
  1. EGRIFTA [Suspect]
     Indication: LIPODYSTROPHY ACQUIRED
     Dosage: 1 IN 1 D
     Dates: start: 20111001
  2. CRESTOR [Suspect]
     Indication: LIPIDS INCREASED
     Dosage: 1 IN 1 D
     Dates: end: 20120101

REACTIONS (3)
  - ARTHRALGIA [None]
  - GRIP STRENGTH DECREASED [None]
  - BLOOD CREATINE PHOSPHOKINASE [None]
